FAERS Safety Report 6354887-6 (Version None)
Quarter: 2009Q3

REPORT INFORMATION
  Report Type: 
  Country: None (occurrence: None)
  Receive Date: 20090914
  Receipt Date: 20090910
  Transmission Date: 20100115
  Serious: Yes (Hospitalization, Disabling)
  Sender: FDA-Public Use
  Company Number: US-MERCK-0906USA03747

PATIENT
  Age: 36 Year
  Sex: Male

DRUGS (1)
  1. ISENTRESS [Suspect]
     Route: 048
     Dates: start: 20081201

REACTIONS (3)
  - LOWER LIMB FRACTURE [None]
  - MULTIPLE FRACTURES [None]
  - NEOPLASM MALIGNANT [None]
